FAERS Safety Report 10151767 (Version 1)
Quarter: 2014Q2

REPORT INFORMATION
  Report Type: Report from Study
  Country: HU (occurrence: HU)
  Receive Date: 20140505
  Receipt Date: 20140505
  Transmission Date: 20141212
  Serious: Yes (Death)
  Sender: FDA-Public Use
  Company Number: HU-ROCHE-1393532

PATIENT
  Age: 53 Year
  Sex: Male
  Weight: 46 kg

DRUGS (2)
  1. XELODA [Suspect]
     Indication: GASTRIC CANCER
     Route: 048
     Dates: start: 20120620, end: 20120627
  2. CISPLATIN [Concomitant]
     Indication: GASTRIC CANCER
     Route: 042
     Dates: start: 20120620

REACTIONS (3)
  - Cachexia [Fatal]
  - Dehydration [Fatal]
  - Pneumonia [Fatal]
